FAERS Safety Report 6429459-5 (Version None)
Quarter: 2009Q4

REPORT INFORMATION
  Report Type: 
  Country: None (occurrence: None)
  Receive Date: 20091105
  Receipt Date: 20090819
  Transmission Date: 20100525
  Serious: No
  Sender: FDA-Public Use
  Company Number: US-ABBOTT-09P-163-0593644-00

PATIENT
  Sex: Female
  Weight: 95.34 kg

DRUGS (3)
  1. KALETRA [Suspect]
     Indication: HIV INFECTION
     Dates: start: 20090601
  2. EPZICOM [Concomitant]
     Indication: HIV INFECTION
  3. VIREAD [Concomitant]
     Indication: HIV INFECTION

REACTIONS (4)
  - DIARRHOEA [None]
  - DRUG DOSE OMISSION [None]
  - GASTROINTESTINAL SOUNDS ABNORMAL [None]
  - INFLUENZA [None]
